FAERS Safety Report 23530554 (Version 1)
Quarter: 2024Q1

REPORT INFORMATION
  Report Type: Spontaneous
  Country: PL (occurrence: PL)
  Receive Date: 20240216
  Receipt Date: 20240216
  Transmission Date: 20240410
  Serious: Yes (Other)
  Sender: FDA-Public Use
  Company Number: PL-JNJFOC-20240230886

PATIENT
  Sex: Male
  Weight: 0.27 kg

DRUGS (2)
  1. OPSUMIT [Suspect]
     Active Substance: MACITENTAN
     Indication: Product used for unknown indication
     Route: 064
  2. SILDENAFIL [Concomitant]
     Active Substance: SILDENAFIL

REACTIONS (2)
  - Oculocerebrorenal syndrome [Unknown]
  - Foetal exposure during pregnancy [Unknown]
